FAERS Safety Report 4982642-8 (Version None)
Quarter: 2006Q2

REPORT INFORMATION
  Report Type: 
  Country: None (occurrence: None)
  Receive Date: 20060425
  Receipt Date: 20060406
  Transmission Date: 20061013
  Serious: Yes (Hospitalization)
  Sender: FDA-Public Use
  Company Number: DE-ABBOTT-06P-062-0330261-00

PATIENT
  Sex: Female

DRUGS (25)
  1. HUMIRA [Suspect]
     Indication: RHEUMATOID ARTHRITIS
     Route: 058
     Dates: end: 20051201
  2. METHOTREXATE SODIUM [Suspect]
     Indication: DRUG USE FOR UNKNOWN INDICATION
     Dates: end: 20051227
  3. ANALGESICS [Concomitant]
     Indication: RHEUMATOID ARTHRITIS
  4. CELECOXIB [Concomitant]
     Indication: DRUG USE FOR UNKNOWN INDICATION
     Dates: end: 20051222
  5. PREDNISOLONE [Concomitant]
     Indication: DRUG USE FOR UNKNOWN INDICATION
  6. PREDNISOLONE [Concomitant]
  7. ESOMEPRAZOLE [Concomitant]
     Indication: DRUG USE FOR UNKNOWN INDICATION
  8. VOLTAREN [Concomitant]
     Indication: DRUG USE FOR UNKNOWN INDICATION
  9. VOLTAREN [Concomitant]
  10. DONEPEZIL HYDROCHLORIDE [Concomitant]
     Indication: DRUG USE FOR UNKNOWN INDICATION
  11. FLUVISTATIN [Concomitant]
     Indication: DRUG USE FOR UNKNOWN INDICATION
  12. RISEDRONATE SODIUM [Concomitant]
     Indication: DRUG USE FOR UNKNOWN INDICATION
  13. UDRAMIL [Concomitant]
     Indication: DRUG USE FOR UNKNOWN INDICATION
  14. CALCIUM BT [Concomitant]
     Indication: DRUG USE FOR UNKNOWN INDICATION
  15. SULFASALAZINE [Concomitant]
     Indication: DRUG USE FOR UNKNOWN INDICATION
  16. FLUVASTATIN SODIUM [Concomitant]
     Indication: DRUG USE FOR UNKNOWN INDICATION
  17. METHYLPREDNISOLONE [Concomitant]
     Indication: DRUG USE FOR UNKNOWN INDICATION
     Route: 042
     Dates: start: 20051223, end: 20051226
  18. E153 [Concomitant]
     Indication: DRUG USE FOR UNKNOWN INDICATION
     Route: 042
  19. ENOXAPARIN SODIUM [Concomitant]
     Indication: DRUG USE FOR UNKNOWN INDICATION
     Route: 058
     Dates: end: 20051221
  20. ENOXAPARIN SODIUM [Concomitant]
     Dates: end: 20051225
  21. LEKOVIT CA [Concomitant]
     Indication: DRUG USE FOR UNKNOWN INDICATION
  22. PANTOPRAZOLE SODIUM [Concomitant]
     Indication: DRUG USE FOR UNKNOWN INDICATION
  23. TRAMADOL HCL [Concomitant]
  24. DIPYRONE TAB [Concomitant]
     Indication: DRUG USE FOR UNKNOWN INDICATION
  25. RAMIPRIL [Concomitant]
     Indication: DRUG USE FOR UNKNOWN INDICATION

REACTIONS (32)
  - ANOREXIA [None]
  - ASTHENIA [None]
  - BLOOD PRESSURE INCREASED [None]
  - C-REACTIVE PROTEIN INCREASED [None]
  - CANDIDIASIS [None]
  - CHILLS [None]
  - CYSTOCELE [None]
  - DERMATITIS [None]
  - ENDOMETRITIS [None]
  - FATIGUE [None]
  - FUNGAL SKIN INFECTION [None]
  - GENERAL PHYSICAL HEALTH DETERIORATION [None]
  - HAEMORRHOIDS [None]
  - KYPHOSIS [None]
  - LEUKOPENIA [None]
  - MUCOSAL INFLAMMATION [None]
  - NAUSEA [None]
  - NEUTROPENIA [None]
  - OSTEOARTHRITIS [None]
  - OVERDOSE [None]
  - PANCYTOPENIA [None]
  - PNEUMONIA [None]
  - PULMONARY FIBROSIS [None]
  - RASH [None]
  - RECTOCELE [None]
  - RHEUMATOID ARTHRITIS [None]
  - SKIN FISSURES [None]
  - SPONDYLOLISTHESIS [None]
  - SYNCOPE [None]
  - THROMBOCYTOPENIA [None]
  - URINARY TRACT INFECTION [None]
  - VOMITING [None]
